FAERS Safety Report 12427148 (Version 1)
Quarter: 2016Q2

REPORT INFORMATION
  Report Type: Spontaneous
  Country: US (occurrence: US)
  Receive Date: 20160601
  Receipt Date: 20160601
  Transmission Date: 20160815
  Serious: Yes (Other)
  Sender: FDA-Public Use
  Company Number: US-UCBSA-2016020083

PATIENT
  Sex: Female

DRUGS (1)
  1. CIMZIA [Suspect]
     Active Substance: CERTOLIZUMAB PEGOL
     Indication: PRODUCT USED FOR UNKNOWN INDICATION
     Dosage: 400 MG, MONTHLY (QM), NDC #: 50474071079
     Route: 058
     Dates: start: 20160303

REACTIONS (2)
  - Viral infection [Unknown]
  - Splenomegaly [Unknown]

NARRATIVE: CASE EVENT DATE: 2016
